FAERS Safety Report 16023687 (Version 1)
Quarter: 2019Q1

REPORT INFORMATION
  Report Type: Spontaneous
  Country: NO (occurrence: NO)
  Receive Date: 20190301
  Receipt Date: 20190301
  Transmission Date: 20190418
  Serious: Yes (Other)
  Sender: FDA-Public Use
  Company Number: NO-JNJFOC-20190230134

PATIENT
  Age: 31 Year
  Sex: Female

DRUGS (6)
  1. REMICADE [Suspect]
     Active Substance: INFLIXIMAB
     Indication: CROHN^S DISEASE
     Route: 042
     Dates: start: 20130918, end: 20140513
  2. CETIRIZIN [Concomitant]
     Active Substance: CETIRIZINE HYDROCHLORIDE
     Route: 065
  3. MEZAVANT [Concomitant]
     Active Substance: MESALAMINE
     Route: 065
  4. NEXIUM [Concomitant]
     Active Substance: ESOMEPRAZOLE MAGNESIUM
     Route: 065
  5. REMSIMA [Suspect]
     Active Substance: INFLIXIMAB
     Indication: CROHN^S DISEASE
     Route: 065
  6. IMUREL [Concomitant]
     Active Substance: AZATHIOPRINE SODIUM
     Route: 065

REACTIONS (20)
  - Hormone level abnormal [Unknown]
  - Neuropathy peripheral [Unknown]
  - Hypokinesia [Unknown]
  - Fungal infection [Unknown]
  - Photophobia [Unknown]
  - Chest X-ray abnormal [Unknown]
  - Nephrolithiasis [Unknown]
  - Depression [Unknown]
  - Dizziness [Unknown]
  - Uterine leiomyoma [Unknown]
  - Anxiety [Unknown]
  - Food allergy [Unknown]
  - Burning sensation [Unknown]
  - Hypoacusis [Unknown]
  - Anaemia [Unknown]
  - Eczema [Unknown]
  - Urinary tract disorder [Recovering/Resolving]
  - Abdominal pain upper [Unknown]
  - Injection site pain [Unknown]
  - Sinusitis [Unknown]

NARRATIVE: CASE EVENT DATE: 2013
